FAERS Safety Report 4515104-2 (Version None)
Quarter: 2004Q4

REPORT INFORMATION
  Report Type: 
  Country: None (occurrence: None)
  Receive Date: 20041201
  Receipt Date: 20041119
  Transmission Date: 20050328
  Serious: Yes (Other)
  Sender: FDA-Public Use
  Company Number: CA-JNJFOC-20040501308

PATIENT
  Sex: Female
  Weight: 63.5 kg

DRUGS (2)
  1. PARAFON FORTE [Suspect]
     Dosage: 2 DOSES=2 TABLETS
     Route: 049
     Dates: start: 20040502, end: 20040502
  2. CELEXA [Concomitant]

REACTIONS (5)
  - COMMUNICATION DISORDER [None]
  - CONVULSION [None]
  - DISTURBANCE IN ATTENTION [None]
  - DIZZINESS [None]
  - TONIC CLONIC MOVEMENTS [None]
